FAERS Safety Report 9736235 (Version 1)
Quarter: 2013Q4

REPORT INFORMATION
  Report Type: Spontaneous
  Country: US (occurrence: US)
  Receive Date: 20131206
  Receipt Date: 20131206
  Transmission Date: 20140711
  Serious: Yes (Hospitalization)
  Sender: FDA-Public Use
  Company Number: US-BRISTOL-MYERS SQUIBB COMPANY-19867191

PATIENT
  Age: 3 Decade
  Sex: Female

DRUGS (3)
  1. ABILIFY [Suspect]
     Dosage: 5MG FOR 1 MONTH?INCREASED TO 10 MG PER WEEK
     Route: 048
  2. ABILIFY MAINTENA INJECTION [Suspect]
     Route: 065
  3. SEROQUEL [Concomitant]

REACTIONS (4)
  - Mania [Unknown]
  - Restlessness [Unknown]
  - Insomnia [Unknown]
  - Akathisia [Unknown]
